FAERS Safety Report 18255550 (Version 1)
Quarter: 2020Q3

REPORT INFORMATION
  Report Type: Spontaneous
  Country: DE (occurrence: DE)
  Receive Date: 20200910
  Receipt Date: 20200910
  Transmission Date: 20201103
  Serious: Yes (Hospitalization)
  Sender: FDA-Public Use
  Company Number: NVSC2020DE245703

PATIENT
  Sex: Male

DRUGS (19)
  1. PANTOPRAZOLE [Concomitant]
     Active Substance: PANTOPRAZOLE
     Indication: PROPHYLAXIS AGAINST GASTROINTESTINAL ULCER
     Dosage: 80 MG, QD (40 MILLIGRAM, BID FOR 7 DAY(S))
     Route: 048
     Dates: start: 20181006, end: 20181012
  2. VALGANCICLOVIR. [Concomitant]
     Active Substance: VALGANCICLOVIR
     Indication: CYTOMEGALOVIRUS INFECTION
     Dosage: 1800 MG, QD (450 MILLIGRAM, QID FOR 6 DAYS)
     Route: 048
     Dates: start: 20181006, end: 20181011
  3. DOXORUBICIN [Suspect]
     Active Substance: DOXORUBICIN
     Indication: B-CELL LYMPHOMA
     Dosage: 50 MG (50 MILLIGRAM, 1X FOR 36 DAY(S))
     Route: 042
     Dates: start: 20180918, end: 20181023
  4. VINCRISTINE [Suspect]
     Active Substance: VINCRISTINE
     Indication: B-CELL LYMPHOMA
     Dosage: UNK (3.21MILLIGRAM/3.01 MILLIGRAM, 3X FOR 36 DAY(S))
     Route: 042
     Dates: start: 20180920, end: 20181025
  5. DEXAMETHASONE. [Concomitant]
     Active Substance: DEXAMETHASONE
     Indication: PROPHYLAXIS
     Dosage: 8 MG, QD (8 MILLIGRAM, QD FOR 1 DAY)
     Route: 042
     Dates: start: 20181011, end: 20181011
  6. CLEMASTIN [Concomitant]
     Active Substance: CLEMASTINE
     Indication: SUPPORTIVE CARE
     Dosage: 2 ML, QD (2 MILLILITER, QD FOR 2 DAY(S))
     Route: 042
     Dates: start: 20181009, end: 20181010
  7. ENOXAPARIN SODIUM. [Concomitant]
     Active Substance: ENOXAPARIN SODIUM
     Indication: EMBOLISM
     Dosage: UNK (100MG/ML, 0.7 ML)
     Route: 058
     Dates: start: 20181006
  8. MESNA. [Concomitant]
     Active Substance: MESNA
     Indication: SUPPORTIVE CARE
     Dosage: 400 MG, QD (400 MILLIGRAM, QD FOR 1 DAY)
     Route: 042
     Dates: start: 20181010, end: 20181010
  9. PEGFILGRASTIM [Suspect]
     Active Substance: PEGFILGRASTIM
     Indication: B-CELL LYMPHOMA
     Dosage: 6 MG (6 MILLIGRAM, 1 XFOR 36 DAY(S))
     Route: 058
     Dates: start: 20180923, end: 20181028
  10. GRANISETRON [Concomitant]
     Active Substance: GRANISETRON
     Indication: NAUSEA
     Dosage: 3 MG, QD (3 MILLIGRAM, QD FOR 2 DAYS)
     Route: 042
     Dates: start: 20181010, end: 20181011
  11. PREDNISOLONE. [Suspect]
     Active Substance: PREDNISOLONE
     Indication: B-CELL LYMPHOMA
     Dosage: 100 MG (100 MILLIGRAM, 5X FOR 47 DAY(S) AND 100 MILLIGRAM QD FOR 2 DAYS)
     Route: 048
     Dates: start: 20180913, end: 20181029
  12. NOVAMINSULFON [Concomitant]
     Active Substance: METAMIZOLE
     Indication: PRODUCT USED FOR UNKNOWN INDICATION
     Dosage: 500 MG (500 MILLIGRAM ^1XD^)
     Route: 048
     Dates: start: 20181010, end: 20181011
  13. TRIMETHOPRIM SULFAMETHOXAZOLE [Concomitant]
     Active Substance: SULFAMETHOXAZOLE\TRIMETHOPRIM
     Indication: INFECTION
     Dosage: 960 MG, QD (960 MILLIGRAM, QD FOR 5 DAY(S))
     Route: 048
     Dates: start: 20181008, end: 20181012
  14. CYCLOPHOSPHAMIDE. [Suspect]
     Active Substance: CYCLOPHOSPHAMIDE
     Indication: B-CELL LYMPHOMA
     Dosage: 750 MILLIGRAM, 1X FOR 36 DAY(S)
     Route: 042
     Dates: start: 20180920, end: 20181025
  15. RITUXIMAB. [Suspect]
     Active Substance: RITUXIMAB
     Indication: B-CELL LYMPHOMA
     Dosage: 375 MG/M2 (375 MILLIGRAM/SQ. METER, 1X FOR 36 DAY(S))
     Route: 042
     Dates: start: 20180918, end: 20181023
  16. LEVOTHYROXINE SODIUM. [Concomitant]
     Active Substance: LEVOTHYROXINE SODIUM
     Indication: HYPERTHYROIDISM
     Dosage: 25 UG, QD (25 MICROGRAM, QD FOR 1 DAY)
     Route: 048
     Dates: start: 20181006, end: 20181006
  17. RANITIDINE. [Concomitant]
     Active Substance: RANITIDINE
     Indication: SUPPORTIVE CARE
     Dosage: 5 ML, QD (5 MILLILITER, QD FOR 1 DAY)
     Route: 042
     Dates: start: 20181009, end: 20181009
  18. SMOFKABIVEN [Concomitant]
     Active Substance: AMINO ACIDS\DEXTROSE\ELECTROLYTES NOS\SOYBEAN OIL
     Indication: PRODUCT USED FOR UNKNOWN INDICATION
     Dosage: 986 ML, QD (986 MILLILITER, QD (0?0?0?1))
     Route: 042
     Dates: start: 20181006, end: 20181009
  19. ATORVASTATIN [Concomitant]
     Active Substance: ATORVASTATIN
     Indication: HYPERCHOLESTEROLAEMIA
     Dosage: 20 MG, QD (20 MILLIGRAM, QD FOR 31 DAY(S))
     Route: 048
     Dates: start: 20181006, end: 20181105

REACTIONS (1)
  - Pyrexia [Unknown]

NARRATIVE: CASE EVENT DATE: 20181105
